FAERS Safety Report 25721356 (Version 1)
Quarter: 2025Q3

REPORT INFORMATION
  Report Type: Spontaneous
  Country: CA (occurrence: CA)
  Receive Date: 20250825
  Receipt Date: 20250825
  Transmission Date: 20251021
  Serious: Yes (Hospitalization, Other)
  Sender: BAYER HEALTHCARE PHARMACEUTICALS INC.
  Company Number: CA-BAYER-2025A110168

PATIENT
  Age: 27 Year
  Sex: Female

DRUGS (2)
  1. YAZ [Suspect]
     Active Substance: DROSPIRENONE\ETHINYL ESTRADIOL
     Indication: Contraception
     Dosage: 1 DF, QD
     Route: 048
     Dates: start: 202003, end: 20250815
  2. DOXYCYCLINE [Concomitant]
     Active Substance: DOXYCYCLINE
     Indication: Lyme disease
     Route: 048
     Dates: start: 20250814

REACTIONS (5)
  - Headache [Recovering/Resolving]
  - Cerebral venous sinus thrombosis [None]
  - Hemiparesis [None]
  - Nausea [None]
  - Musculoskeletal stiffness [None]

NARRATIVE: CASE EVENT DATE: 20250801
